FAERS Safety Report 6330456-9 (Version None)
Quarter: 2009Q3

REPORT INFORMATION
  Report Type: 
  Country: None (occurrence: None)
  Receive Date: 20090827
  Receipt Date: 20090825
  Transmission Date: 20100115
  Serious: Yes (Other)
  Sender: FDA-Public Use
  Company Number: US-BAYER-200930570NA

PATIENT
  Age: 33 Year
  Sex: Female
  Weight: 66 kg

DRUGS (1)
  1. YAZ [Suspect]
     Indication: AFFECTIVE DISORDER
     Dates: start: 20081101

REACTIONS (2)
  - GASTROINTESTINAL DISORDER [None]
  - VENTRICULAR TACHYCARDIA [None]
